FAERS Safety Report 8649052 (Version 4)
Quarter: 2012Q4

REPORT INFORMATION
  Report Type: 
  Country: GB (occurrence: GB)
  Receive Date: 20120704
  Receipt Date: 20120914
  Transmission Date: 20130627
  Serious: Yes (Other)
  Sender: FDA-Public Use
  Company Number: PHFR2012GB003676

PATIENT
  Age: 34 Year
  Sex: Male

DRUGS (3)
  1. CLOZARIL [Suspect]
     Indication: SCHIZOPHRENIA
     Dosage: 325 mg, UNK
     Route: 048
     Dates: start: 20120601
  2. SUCCINYL [Concomitant]
     Dosage: 150 mg, UNK
     Route: 048
     Dates: start: 20120430
  3. LACTULOSE [Concomitant]
     Indication: CONSTIPATION
     Dosage: 20 mg, UNK
     Route: 048

REACTIONS (2)
  - Differential white blood cell count abnormal [Recovering/Resolving]
  - Eosinophil count increased [Recovered/Resolved]
